FAERS Safety Report 7361898-0 (Version None)
Quarter: 2011Q1

REPORT INFORMATION
  Report Type: 
  Country: None (occurrence: None)
  Receive Date: 20110318
  Receipt Date: 20110310
  Transmission Date: 20110831
  Serious: Yes (Death, Hospitalization)
  Sender: FDA-Public Use
  Company Number: BR-PFIZER INC-2011052815

PATIENT
  Age: 59 Year
  Sex: Male

DRUGS (4)
  1. RISPERIDONE [Concomitant]
     Dosage: UNK
     Dates: start: 20090101
  2. SUTENT [Suspect]
     Indication: RENAL CANCER
     Dosage: 50 MG, 1X/DAY
     Route: 048
     Dates: start: 20100701
  3. LEXAPRO [Concomitant]
     Dosage: UNK
     Dates: start: 20090101
  4. RAMIPRIL [Concomitant]
     Dosage: UNK
     Dates: start: 20090101

REACTIONS (4)
  - DISEASE PROGRESSION [None]
  - RENAL CANCER [None]
  - CYSTITIS [None]
  - PLEURAL EFFUSION [None]
